FAERS Safety Report 6434818-0 (Version None)
Quarter: 2009Q4

REPORT INFORMATION
  Report Type: 
  Country: None (occurrence: None)
  Receive Date: 20091110
  Receipt Date: 20091029
  Transmission Date: 20100525
  Serious: Yes (Other)
  Sender: FDA-Public Use
  Company Number: US-JNJFOC-20091100204

PATIENT
  Age: 4 Month
  Sex: Male
  Weight: 9.98 kg

DRUGS (3)
  1. TYLENOL (CAPLET) [Suspect]
     Route: 048
  2. TYLENOL (CAPLET) [Suspect]
     Indication: TEETHING
     Route: 048
  3. RANITIDINE [Concomitant]
     Indication: GASTROOESOPHAGEAL REFLUX DISEASE
     Dosage: 1-2 DOSES A DAY

REACTIONS (8)
  - ABNORMAL BEHAVIOUR [None]
  - BLOOD IMMUNOGLOBULIN A DECREASED [None]
  - BLOOD IRON DECREASED [None]
  - FEELING ABNORMAL [None]
  - GAIT DISTURBANCE [None]
  - HAEMOGLOBIN DECREASED [None]
  - MOTOR DYSFUNCTION [None]
  - TRANSMISSION OF AN INFECTIOUS AGENT VIA A MEDICINAL PRODUCT [None]
